FAERS Safety Report 19818667 (Version 1)
Quarter: 2021Q3

REPORT INFORMATION
  Report Type: Spontaneous
  Country: BR (occurrence: BR)
  Receive Date: 20210912
  Receipt Date: 20210912
  Transmission Date: 20211014
  Serious: Yes (Hospitalization)
  Sender: FDA-Public Use
  Company Number: BR-UCBSA-2021042368

PATIENT
  Age: 88 Year
  Sex: Female
  Weight: 60 kg

DRUGS (1)
  1. KEPPRA [Suspect]
     Active Substance: LEVETIRACETAM
     Indication: SEIZURE
     Dosage: 10 MILLILITER, 2X/DAY (100 MG/ML SOL)
     Route: 048
     Dates: start: 202106

REACTIONS (3)
  - Meningioma [Unknown]
  - Seizure [Unknown]
  - Drug ineffective [Unknown]
